FAERS Safety Report 21170984 (Version 1)
Quarter: 2022Q3

REPORT INFORMATION
  Report Type: Spontaneous
  Country: US (occurrence: None)
  Receive Date: 20220803
  Receipt Date: 20220803
  Transmission Date: 20221027
  Serious: Yes (Hospitalization)
  Sender: FDA-Public Use
  Company Number: None

PATIENT
  Sex: Female

DRUGS (1)
  1. REMICADE [Suspect]
     Active Substance: INFLIXIMAB
     Indication: Psoriasis
     Dosage: INFUSE 5 MG /KG INTRAVENOUSLY EVERY 6 WEEKS
     Route: 042
     Dates: start: 20190312

REACTIONS (1)
  - Hospitalisation [None]
